FAERS Safety Report 7526355-7 (Version None)
Quarter: 2011Q2

REPORT INFORMATION
  Report Type: 
  Country: None (occurrence: None)
  Receive Date: 20110606
  Receipt Date: 20110602
  Transmission Date: 20111010
  Serious: Yes (Hospitalization, Other)
  Sender: FDA-Public Use
  Company Number: CA-ABBOTT-11P-028-0726639-00

PATIENT
  Sex: Female
  Weight: 54.48 kg

DRUGS (4)
  1. DILOTIN [Suspect]
     Indication: PAIN
     Route: 058
     Dates: start: 20110529, end: 20110531
  2. HUMIRA [Suspect]
     Indication: CROHN'S DISEASE
     Route: 058
     Dates: start: 20101224, end: 20110429
  3. AVIANE-28 [Concomitant]
     Indication: CONTRACEPTION
     Dosage: UNKNOWN
     Route: 048
     Dates: start: 20091001
  4. REMICADE [Suspect]
     Indication: CROHN'S DISEASE
     Dosage: EVERY TWO WEEKS
     Dates: start: 20110520, end: 20110531

REACTIONS (13)
  - PAIN [None]
  - JOINT SWELLING [None]
  - BONE PAIN [None]
  - MUSCULOSKELETAL PAIN [None]
  - ARTHRALGIA [None]
  - INTESTINAL RESECTION [None]
  - CROHN'S DISEASE [None]
  - ANAPHYLACTIC REACTION [None]
  - OEDEMA PERIPHERAL [None]
  - DRUG INEFFECTIVE [None]
  - FATIGUE [None]
  - NAUSEA [None]
  - SMALL INTESTINAL STENOSIS [None]
